FAERS Safety Report 25391592 (Version 1)
Quarter: 2025Q2

REPORT INFORMATION
  Report Type: Spontaneous
  Country: AR (occurrence: AR)
  Receive Date: 20250603
  Receipt Date: 20250603
  Transmission Date: 20250717
  Serious: Yes (Other)
  Sender: AZURITY PHARMACEUTICALS
  Company Number: AR-AZURITY PHARMACEUTICALS, INC.-AZR202505-001517

PATIENT
  Age: 13 Year
  Sex: Male

DRUGS (6)
  1. METHOTREXATE [Suspect]
     Active Substance: METHOTREXATE
     Indication: B-cell lymphoma
     Route: 037
  2. METHOTREXATE [Suspect]
     Active Substance: METHOTREXATE
     Route: 042
  3. METHOTREXATE [Suspect]
     Active Substance: METHOTREXATE
     Route: 037
  4. METHOTREXATE [Suspect]
     Active Substance: METHOTREXATE
     Route: 042
  5. LEUCOVORIN [Concomitant]
     Active Substance: LEUCOVORIN\LEUCOVORIN CALCIUM
     Indication: Product used for unknown indication
     Route: 065
  6. LEUCOVORIN [Concomitant]
     Active Substance: LEUCOVORIN\LEUCOVORIN CALCIUM
     Route: 065

REACTIONS (4)
  - Neurotoxicity [Recovered/Resolved]
  - Generalised tonic-clonic seizure [Recovered/Resolved]
  - Blindness transient [Recovered/Resolved]
  - Inappropriate affect [Recovered/Resolved]
